FAERS Safety Report 9808236 (Version 3)
Quarter: 2014Q2

REPORT INFORMATION
  Report Type: Spontaneous
  Country: US (occurrence: US)
  Receive Date: 20140110
  Receipt Date: 20140416
  Transmission Date: 20141212
  Serious: Yes (Hospitalization, Other)
  Sender: FDA-Public Use
  Company Number: US-GILEAD-2014-0091506

PATIENT
  Age: 58 Year
  Sex: Male

DRUGS (3)
  1. LETAIRIS [Suspect]
     Indication: PULMONARY ARTERIAL HYPERTENSION
     Dosage: 10 MG, QD
     Route: 065
     Dates: start: 20131113
  2. TYVASO [Concomitant]
  3. ADCIRCA [Concomitant]

REACTIONS (4)
  - Cellulitis [Unknown]
  - Spinal fracture [Unknown]
  - Fall [Unknown]
  - Balance disorder [Unknown]
